FAERS Safety Report 19655008 (Version 1)
Quarter: 2021Q3

REPORT INFORMATION
  Report Type: Spontaneous
  Country: US (occurrence: US)
  Receive Date: 20210804
  Receipt Date: 20210804
  Transmission Date: 20211014
  Serious: No
  Sender: FDA-Public Use
  Company Number: US-TARO-2020TAR01464

PATIENT

DRUGS (1)
  1. FLUOCINONIDE. [Suspect]
     Active Substance: FLUOCINONIDE
     Indication: PRODUCT USED FOR UNKNOWN INDICATION
     Dosage: STORAGE CONDITIONS: ROOM TEMPERATURE
     Route: 065

REACTIONS (3)
  - Product physical issue [Unknown]
  - Product packaging issue [Unknown]
  - Drug ineffective [Unknown]
